FAERS Safety Report 24827643 (Version 1)
Quarter: 2025Q1

REPORT INFORMATION
  Report Type: Report from Study
  Country: KR (occurrence: KR)
  Receive Date: 20250109
  Receipt Date: 20250109
  Transmission Date: 20250409
  Serious: Yes (Hospitalization, Other)
  Sender: JAZZ
  Company Number: KR-BR-2024-0307

PATIENT
  Age: 77 Year
  Sex: Male
  Weight: 55.8 kg

DRUGS (18)
  1. LURBINECTEDIN [Suspect]
     Active Substance: LURBINECTEDIN
     Indication: Product used for unknown indication
     Dosage: 2.6 MILLIGRAM/SQ. METER, Q3W
     Route: 042
     Dates: start: 20240806
  2. PROCADEX [Concomitant]
     Indication: Prostate cancer
     Dosage: 50 MILLIGRAM, QD
     Route: 048
     Dates: start: 20240128
  3. NAFTOPIDIL [Concomitant]
     Active Substance: NAFTOPIDIL
     Indication: Coronary artery disease
     Dosage: 75 MILLIGRAM, QD
     Route: 048
     Dates: start: 20240128
  4. VESICARE [Concomitant]
     Active Substance: SOLIFENACIN SUCCINATE
     Indication: Prostate cancer
     Dosage: 5 MILLIGRAM, QD
     Route: 048
     Dates: start: 20240128
  5. MIRABEGRON [Concomitant]
     Active Substance: MIRABEGRON
     Indication: Prostate cancer
     Dosage: 50 MILLIGRAM, QD
     Dates: start: 20240128
  6. DICAMAX [Concomitant]
     Indication: Prophylaxis
     Dosage: 1000 MILLIGRAM, QD
     Route: 048
     Dates: start: 20240128
  7. EZETIMIBE ROSUVASTATIN MEPHA [Concomitant]
     Indication: Hyperlipidaemia
     Dosage: 1 DOSAGE FORM, QD
     Route: 048
     Dates: start: 20240613
  8. CANDESARTAN CILEXETIL [Concomitant]
     Active Substance: CANDESARTAN CILEXETIL
     Indication: Hypertension
     Dosage: 4 MILLIGRAM, QD
     Route: 048
     Dates: start: 20240521
  9. CARVEDILOL [Concomitant]
     Active Substance: CARVEDILOL
     Indication: Hypertension
     Dosage: 3.125 MILLIGRAM, QD
     Route: 048
     Dates: start: 20230524
  10. COUGH SYRUP + MUCUS [Concomitant]
     Indication: Small cell lung cancer
     Dosage: 20 MILLILITER, QD
     Route: 048
     Dates: start: 20240521
  11. TRAMADOL HYDROCHLORIDE [Concomitant]
     Active Substance: TRAMADOL HYDROCHLORIDE
     Indication: Cancer pain
     Dosage: 50 MILLIGRAM, QD
     Route: 048
     Dates: start: 20240128
  12. DONG A GASTER [Concomitant]
     Indication: Gastritis prophylaxis
     Route: 048
     Dates: start: 20240128
  13. TRESIBA [Concomitant]
     Active Substance: INSULIN DEGLUDEC
     Indication: Diabetes mellitus
     Route: 058
     Dates: start: 20220723
  14. FIASP [Concomitant]
     Active Substance: INSULIN ASPART
     Indication: Diabetes mellitus
     Route: 058
     Dates: start: 20230215
  15. OTRON [Concomitant]
     Indication: Prophylaxis of nausea and vomiting
     Dosage: 8 MILLIGRAM / 3WK
     Route: 042
     Dates: start: 20240806
  16. AMINO ACIDS\DEXTROSE\ELECTROLYTES NOS\SOYBEAN OIL\VITAMINS [Concomitant]
     Active Substance: AMINO ACIDS\DEXTROSE\ELECTROLYTES NOS\SOYBEAN OIL\VITAMINS
     Indication: Prophylaxis
     Route: 042
     Dates: start: 20240806
  17. XYLOMETAZOLINE HYDROCHLORIDE [Concomitant]
     Active Substance: XYLOMETAZOLINE HYDROCHLORIDE
     Indication: Nasopharyngitis
     Dosage: 60 MILLIGRAM / 8H
     Route: 048
     Dates: start: 20241021
  18. AUGMENTIN [Concomitant]
     Active Substance: AMOXICILLIN\CLAVULANATE POTASSIUM
     Indication: Nasopharyngitis
     Dosage: 375 MILLIGRAM, TID/ / 8 H
     Route: 048
     Dates: start: 20241021

REACTIONS (1)
  - Febrile neutropenia [Recovered/Resolved]

NARRATIVE: CASE EVENT DATE: 20241030
